FAERS Safety Report 4895591-0 (Version None)
Quarter: 2006Q1

REPORT INFORMATION
  Report Type: 
  Country: None (occurrence: None)
  Receive Date: 20060125
  Receipt Date: 20060106
  Transmission Date: 20060701
  Serious: Yes (Death)
  Sender: FDA-Public Use
  Company Number: 20052683

PATIENT
  Sex: Female

DRUGS (1)
  1. LIORESAL [Suspect]
     Indication: MUSCLE SPASTICITY
     Dosage: DAILY, INTRATHECAL
     Route: 037

REACTIONS (8)
  - BRONCHOPNEUMONIA [None]
  - CARDIAC ARREST [None]
  - CEREBRAL PALSY [None]
  - CONVULSION [None]
  - CORONARY ARTERY DISEASE [None]
  - CYANOSIS [None]
  - ORAL INTAKE REDUCED [None]
  - RESPIRATORY ARREST [None]
